FAERS Safety Report 15635157 (Version 2)
Quarter: 2018Q4

REPORT INFORMATION
  Report Type: Spontaneous
  Country: BR (occurrence: BR)
  Receive Date: 20181119
  Receipt Date: 20181130
  Transmission Date: 20190205
  Serious: Yes (Other)
  Sender: FDA-Public Use
  Company Number: BR-AMGEN-BRASP2018164276

PATIENT
  Age: 72 Year
  Sex: Female

DRUGS (1)
  1. ENBREL [Suspect]
     Active Substance: ETANERCEPT
     Indication: PRODUCT USED FOR UNKNOWN INDICATION
     Dosage: UNK
     Route: 065
     Dates: start: 20181022, end: 20181112

REACTIONS (9)
  - Peripheral swelling [Unknown]
  - Dysentery [Recovering/Resolving]
  - Drug effect incomplete [Unknown]
  - Dry skin [Unknown]
  - Cataract [Unknown]
  - Food poisoning [Recovering/Resolving]
  - Hypokinesia [Unknown]
  - Feeling abnormal [Recovering/Resolving]
  - Hypersensitivity [Unknown]

NARRATIVE: CASE EVENT DATE: 20181112
